FAERS Safety Report 4484895-1 (Version None)
Quarter: 2004Q3

REPORT INFORMATION
  Report Type: 
  Country: None (occurrence: None)
  Receive Date: 20040921
  Receipt Date: 20030828
  Transmission Date: 20050211
  Serious: Yes (Other)
  Sender: FDA-Public Use
  Company Number: 163-20785-03090015

PATIENT
  Age: 45 Year
  Sex: Female
  Weight: 72 kg

DRUGS (2)
  1. THALOMID [Suspect]
     Indication: NON-SMALL CELL LUNG CANCER
     Dosage: 400 - 1000 MG, QHS, ORAL
     Route: 048
     Dates: start: 20030730
  2. RADIATION (UNKNOWN) [Suspect]
     Indication: NON-SMALL CELL LUNG CANCER
     Dosage: 2.5 GY, QD, ON DAYS 1-5 WEEKLY FOR 3 WEEKS,
     Dates: start: 20030730, end: 20030801

REACTIONS (1)
  - HYPERKALAEMIA [None]
